FAERS Safety Report 11926990 (Version 1)
Quarter: 2016Q1

REPORT INFORMATION
  Report Type: Spontaneous
  Country: US (occurrence: None)
  Receive Date: 20160115
  Receipt Date: 20160115
  Transmission Date: 20160526
  Serious: Yes (Other)
  Sender: FDA-Public Use
  Company Number: None

PATIENT
  Age: 51 Year
  Sex: Female

DRUGS (1)
  1. NITROFURANTOIN MONOHYDRATE/ MACROCRYSTALLINE [Suspect]
     Active Substance: NITROFURANTOIN\NITROFURANTOIN MONOHYDRATE
     Indication: INFECTION
     Route: 048

REACTIONS (4)
  - Pyrexia [None]
  - Dyspnoea [None]
  - Headache [None]
  - Chills [None]

NARRATIVE: CASE EVENT DATE: 20150114
